FAERS Safety Report 11583277 (Version 1)
Quarter: 2015Q4

REPORT INFORMATION
  Report Type: Spontaneous
  Country: US (occurrence: US)
  Receive Date: 20151001
  Receipt Date: 20151001
  Transmission Date: 20160304
  Serious: No
  Sender: FDA-Public Use
  Company Number: US-ASTRAZENECA-2015SE92319

PATIENT
  Sex: Female

DRUGS (1)
  1. XIGDUO XR [Suspect]
     Active Substance: DAPAGLIFLOZIN PROPANEDIOL\METFORMIN HYDROCHLORIDE
     Indication: DIABETES MELLITUS
     Dosage: 10 MG/1000 MG, UNKNOWN
     Route: 048
     Dates: start: 201509, end: 201509

REACTIONS (4)
  - Vulvovaginal swelling [Unknown]
  - Adverse event [Unknown]
  - Fungal infection [Unknown]
  - Blister [Unknown]

NARRATIVE: CASE EVENT DATE: 201509
